FAERS Safety Report 5710082-2 (Version None)
Quarter: 2008Q2

REPORT INFORMATION
  Report Type: 
  Country: None (occurrence: None)
  Receive Date: 20080418
  Receipt Date: 20070817
  Transmission Date: 20081010
  Serious: No
  Sender: FDA-Public Use
  Company Number: US-ASTRAZENECA-2007UW19909

PATIENT
  Age: 76 Year
  Sex: Female
  Weight: 81.6 kg

DRUGS (4)
  1. TOPROL-XL [Suspect]
     Indication: HYPERTENSION
     Route: 048
     Dates: end: 20070618
  2. TOPROL-XL [Suspect]
     Route: 048
     Dates: start: 20070618
  3. TOPROL-XL [Suspect]
     Route: 048
  4. SYNTHROID [Concomitant]

REACTIONS (5)
  - ABDOMINAL PAIN UPPER [None]
  - BLOOD PRESSURE INCREASED [None]
  - FATIGUE [None]
  - MEDICATION TAMPERING [None]
  - NAUSEA [None]
